FAERS Safety Report 13265847 (Version 1)
Quarter: 2017Q1

REPORT INFORMATION
  Report Type: Spontaneous
  Country: US (occurrence: US)
  Receive Date: 20170223
  Receipt Date: 20170223
  Transmission Date: 20170428
  Serious: Yes (Hospitalization)
  Sender: FDA-Public Use
  Company Number: US-MYLANLABS-2016M1012948

PATIENT
  Sex: Female
  Weight: 67.12 kg

DRUGS (2)
  1. ENBREL [Concomitant]
     Active Substance: ETANERCEPT
     Indication: RHEUMATOID ARTHRITIS
     Dosage: UNK
  2. VANCOMYCIN [Suspect]
     Active Substance: VANCOMYCIN
     Indication: LOCALISED INFECTION
     Dosage: UNK, QD
     Route: 042
     Dates: start: 2014, end: 2014

REACTIONS (1)
  - Red man syndrome [Recovered/Resolved]

NARRATIVE: CASE EVENT DATE: 2014
